FAERS Safety Report 6011545-5 (Version None)
Quarter: 2008Q4

REPORT INFORMATION
  Report Type: 
  Country: None (occurrence: None)
  Receive Date: 20081218
  Receipt Date: 20080908
  Transmission Date: 20090506
  Serious: No
  Sender: FDA-Public Use
  Company Number: US-ASTRAZENECA-2008UW18506

PATIENT
  Age: 61 Year
  Sex: Female

DRUGS (1)
  1. CRESTOR [Suspect]
     Dosage: 5 MG THREE DAYS PER WEEK
     Route: 048
     Dates: start: 20080523, end: 20080801

REACTIONS (2)
  - MUSCLE SPASMS [None]
  - MYALGIA [None]
